FAERS Safety Report 5408712-8 (Version None)
Quarter: 2007Q3

REPORT INFORMATION
  Report Type: 
  Country: None (occurrence: None)
  Receive Date: 20070808
  Receipt Date: 20070803
  Transmission Date: 20080115
  Serious: Yes (Hospitalization)
  Sender: FDA-Public Use
  Company Number: A0668156A

PATIENT
  Sex: Female

DRUGS (2)
  1. COREG [Suspect]
     Route: 048
  2. UNSPECIFIED MEDICATION [Concomitant]

REACTIONS (4)
  - BREAST CANCER [None]
  - FATIGUE [None]
  - LYMPHOMA [None]
  - MALAISE [None]
